FAERS Safety Report 17488160 (Version 1)
Quarter: 2020Q1

REPORT INFORMATION
  Report Type: Spontaneous
  Country: US (occurrence: US)
  Receive Date: 20200220
  Receipt Date: 20200220
  Transmission Date: 20200409
  Serious: No
  Sender: FDA-Public Use
  Company Number: None

PATIENT
  Age: 72 Year
  Sex: Female

DRUGS (1)
  1. BOTOX [Suspect]
     Active Substance: ONABOTULINUMTOXINA
     Dosage: ?          OTHER STRENGTH:200 UNIT;?
     Route: 030
     Dates: start: 201902

REACTIONS (5)
  - Clavicle fracture [None]
  - Urinary tract infection [None]
  - Hip fracture [None]
  - Fall [None]
  - Dizziness [None]

NARRATIVE: CASE EVENT DATE: 20200220
